FAERS Safety Report 6046431-8 (Version None)
Quarter: 2009Q1

REPORT INFORMATION
  Report Type: 
  Country: None (occurrence: None)
  Receive Date: 20090121
  Receipt Date: 20090121
  Transmission Date: 20090719
  Serious: Yes (Other)
  Sender: FDA-Public Use
  Company Number: None

PATIENT
  Age: 58 Year
  Sex: Female
  Weight: 61.6892 kg

DRUGS (2)
  1. PHOSOPLEX N/A OPTIMAL THERAPEUTICS [Suspect]
     Indication: ARTHRALGIA
     Dosage: 4 CAPSULES ONCE A DAY
     Dates: start: 20081218, end: 20090111
  2. PHOSOPLEX N/A OPTIMAL THERAPEUTICS [Suspect]
     Indication: OSTEOARTHRITIS
     Dosage: 4 CAPSULES ONCE A DAY
     Dates: start: 20081218, end: 20090111

REACTIONS (4)
  - ABDOMINAL PAIN UPPER [None]
  - DYSPEPSIA [None]
  - ERUCTATION [None]
  - HAEMATOCHEZIA [None]
